FAERS Safety Report 17533777 (Version 1)
Quarter: 2020Q1

REPORT INFORMATION
  Report Type: Spontaneous
  Country: IN (occurrence: IN)
  Receive Date: 20200312
  Receipt Date: 20200312
  Transmission Date: 20200409
  Serious: Yes (Other)
  Sender: FDA-Public Use
  Company Number: IN-PFIZER INC-2020108723

PATIENT
  Age: 20 Year
  Sex: Male

DRUGS (1)
  1. SUTENT [Suspect]
     Active Substance: SUNITINIB MALATE
     Indication: GASTROINTESTINAL CANCER METASTATIC
     Dosage: 50 MG, CYCLIC (2 WEEKS ON THEN 1 WEEK OFF)
     Route: 048

REACTIONS (1)
  - Syncope [Unknown]
